FAERS Safety Report 9932662 (Version 1)
Quarter: 2014Q1

REPORT INFORMATION
  Report Type: Report from Study
  Country: US (occurrence: US)
  Receive Date: 20140228
  Receipt Date: 20140228
  Transmission Date: 20141002
  Serious: No
  Sender: FDA-Public Use
  Company Number: US-ABBVIE-13P-163-1067029-00

PATIENT
  Age: 64 Year
  Sex: Male

DRUGS (3)
  1. ANDROGEL [Suspect]
     Indication: BLOOD TESTOSTERONE DECREASED
     Dosage: 3 PUMPS/DAY
     Dates: start: 201303
  2. ANDROGEL [Suspect]
     Dosage: 2 PACKETS/DAY
     Dates: start: 2012, end: 201212
  3. ANDROGEL [Suspect]
     Indication: PRODUCT USED FOR UNKNOWN INDICATION
     Dosage: 3 PUMPS/DAY
     Dates: start: 201212

REACTIONS (6)
  - Weight decreased [Unknown]
  - Asthenia [Unknown]
  - Fatigue [Unknown]
  - Drug administration error [Unknown]
  - Drug prescribing error [Unknown]
  - Underdose [Unknown]
